FAERS Safety Report 24268210 (Version 2)
Quarter: 2024Q3

REPORT INFORMATION
  Report Type: Spontaneous
  Country: CA (occurrence: CA)
  Receive Date: 20240830
  Receipt Date: 20240924
  Transmission Date: 20241016
  Serious: Yes (Hospitalization, Other)
  Sender: HIKMA
  Company Number: CA-HIKMA PHARMACEUTICALS USA INC.-CA-H14001-24-08122

PATIENT
  Sex: Female

DRUGS (3)
  1. ESTRADIOL [Suspect]
     Active Substance: ESTRADIOL
     Indication: In vitro fertilisation
     Dosage: UNKNOWN
     Route: 065
  2. PROGESTERONE [Suspect]
     Active Substance: PROGESTERONE
     Indication: In vitro fertilisation
     Dosage: 1 MILLILITER, QD
     Route: 065
     Dates: start: 20240106, end: 20240203
  3. PROGESTERONE [Suspect]
     Active Substance: PROGESTERONE
     Dosage: DOSAGE WAS DOUBLED TO 2MLS
     Route: 030
     Dates: start: 20240202, end: 20240220

REACTIONS (6)
  - Abortion spontaneous [Unknown]
  - Eosinophilic pneumonia [Recovered/Resolved]
  - Headache [Recovered/Resolved]
  - Dyspnoea [Recovered/Resolved]
  - Pyrexia [Recovered/Resolved]
  - Allergic reaction to excipient [Recovered/Resolved]

NARRATIVE: CASE EVENT DATE: 20240214
